FAERS Safety Report 14969534 (Version 4)
Quarter: 2021Q3

REPORT INFORMATION
  Report Type: Report from Study
  Country: JP (occurrence: JP)
  Receive Date: 20180604
  Receipt Date: 20210820
  Transmission Date: 20211014
  Serious: Yes (Hospitalization)
  Sender: FDA-Public Use
  Company Number: JP-JNJFOC-20180536549

PATIENT
  Age: 71 Year
  Sex: Female
  Weight: 48.6 kg

DRUGS (34)
  1. CALONAL [Concomitant]
     Active Substance: ACETAMINOPHEN
     Dosage: 400 TO 800 MILLIGRAM
     Route: 048
     Dates: start: 20180227
  2. DARATUMUMAB [Suspect]
     Active Substance: DARATUMUMAB
     Dosage: 784 MILLIGRAM, PER CHEMO REGIM
     Route: 042
     Dates: start: 20180227, end: 20180228
  3. DEXAMETHASONE. [Concomitant]
     Active Substance: DEXAMETHASONE
     Indication: PLASMA CELL MYELOMA
     Dosage: 19.8 MILLIGRAM
     Route: 065
     Dates: start: 20180425
  4. MEDROL [Concomitant]
     Active Substance: METHYLPREDNISOLONE
     Dosage: 20 MILLIGRAM
     Route: 048
     Dates: start: 20180301
  5. REVLIMID [Concomitant]
     Active Substance: LENALIDOMIDE
     Indication: PLASMA CELL MYELOMA
     Route: 048
     Dates: start: 20200109
  6. PANTETHINE [Concomitant]
     Active Substance: PANTETHINE
     Indication: CONSTIPATION
     Route: 048
     Dates: start: 20190722
  7. DEXART [Concomitant]
     Active Substance: DEXAMETHASONE SODIUM PHOSPHATE
     Indication: PLASMA CELL MYELOMA
     Route: 065
     Dates: start: 20180227, end: 20180625
  8. NINLARO [Concomitant]
     Active Substance: IXAZOMIB CITRATE
     Indication: PLASMA CELL MYELOMA
     Route: 048
     Dates: start: 20201203
  9. LANSOPRAZOLE. [Concomitant]
     Active Substance: LANSOPRAZOLE
     Indication: GASTROINTESTINAL DISORDER THERAPY
     Dosage: 15 MILLIGRAM, QD
     Route: 048
     Dates: start: 20160910
  10. ZOLEDRONIC ACID [Concomitant]
     Active Substance: ZOLEDRONIC ACID
     Indication: PLASMA CELL MYELOMA
     Route: 042
     Dates: start: 20170227
  11. NINLARO [Concomitant]
     Active Substance: IXAZOMIB CITRATE
     Route: 048
     Dates: start: 20210204
  12. ASPARA POTASSIUM [Concomitant]
     Active Substance: POTASSIUM ASPARTATE
     Indication: HYPOKALAEMIA
     Route: 048
     Dates: start: 20210808, end: 20210810
  13. DARATUMUMAB [Suspect]
     Active Substance: DARATUMUMAB
     Dosage: 784 MILLIGRAM, PER CHEMO REGIM
     Route: 042
     Dates: start: 20180306, end: 20180620
  14. LIXIANA [Concomitant]
     Active Substance: EDOXABAN TOSYLATE
     Dosage: 30 MILLIGRAM, QD
     Route: 065
     Dates: start: 20170227
  15. ZOLEDRONIC ACID [Concomitant]
     Active Substance: ZOLEDRONIC ACID
     Dosage: 4 MILLIGRAM
     Route: 065
     Dates: start: 20170227
  16. NORMAL SALINE [Concomitant]
     Active Substance: SODIUM CHLORIDE
     Dosage: 250 MILLILITER
     Route: 042
     Dates: start: 20180307
  17. BRIMONIDINE TARTRATE. [Concomitant]
     Active Substance: BRIMONIDINE TARTRATE
     Indication: GLAUCOMA
     Route: 047
     Dates: start: 20210216
  18. POTASSIUM CHLORIDE. [Concomitant]
     Active Substance: POTASSIUM CHLORIDE
     Indication: HYPOKALAEMIA
     Route: 065
     Dates: start: 20210808
  19. CARFILZOMIB [Suspect]
     Active Substance: CARFILZOMIB
     Indication: PLASMA CELL MYELOMA
     Dosage: 84 MILLIGRAM, PER CHEMO REGIM
     Route: 042
     Dates: start: 20180227, end: 20180524
  20. CARFILZOMIB [Suspect]
     Active Substance: CARFILZOMIB
     Dosage: 84 MILLIGRAM, PER CHEMO REGIM
     Route: 042
     Dates: start: 20180227, end: 20180524
  21. BACTRIM [Concomitant]
     Active Substance: SULFAMETHOXAZOLE\TRIMETHOPRIM
     Dosage: 2 UNK
     Route: 065
     Dates: start: 20160910
  22. LAC?B [Concomitant]
     Active Substance: BIFIDOBACTERIUM SPP.
     Dosage: 1 UNK
     Route: 065
     Dates: start: 20180602, end: 20180731
  23. LENADEX [Concomitant]
     Active Substance: DEXAMETHASONE ACETATE
     Indication: PLASMA CELL MYELOMA
     Route: 048
     Dates: start: 20201203
  24. MAGMITT [Concomitant]
     Active Substance: MAGNESIUM OXIDE
     Indication: CONSTIPATION
     Route: 048
     Dates: start: 20190722
  25. DARATUMUMAB [Suspect]
     Active Substance: DARATUMUMAB
     Indication: PLASMA CELL MYELOMA
     Dosage: 784 MILLIGRAM, PER CHEMO REGIM
     Route: 042
     Dates: start: 20180227, end: 20180523
  26. ZOVIRAX [Concomitant]
     Active Substance: ACYCLOVIR
     Indication: INFECTION PROPHYLAXIS
     Dosage: 200 MILLIGRAM
     Route: 048
     Dates: start: 20170619
  27. EDOXABAN TOSYLATE [Concomitant]
     Active Substance: EDOXABAN TOSYLATE
     Indication: THROMBOSIS PROPHYLAXIS
     Route: 065
     Dates: start: 20170227
  28. ENORAS [Concomitant]
     Indication: NUTRITIONAL SUPPLEMENTATION
     Route: 048
     Dates: start: 20210721
  29. CARFILZOMIB [Suspect]
     Active Substance: CARFILZOMIB
     Dosage: 84 MILLIGRAM, PER CHEMO REGIM
     Route: 042
     Dates: start: 20180306, end: 20180625
  30. POVIDONE?IODINE. [Concomitant]
     Active Substance: POVIDONE-IODINE
     Indication: INFECTION PROPHYLAXIS
     Dosage: 1 UNK
     Route: 065
     Dates: start: 20180213, end: 20180731
  31. SINGULAIR [Concomitant]
     Active Substance: MONTELUKAST SODIUM
     Dosage: 10 MILLIGRAM, QD
     Route: 048
     Dates: start: 20180227
  32. RESTAMIN A KOWA [Concomitant]
     Dosage: 30 MILLIGRAM
     Route: 048
     Dates: start: 20180227
  33. BAKTAR [Concomitant]
     Active Substance: SULFAMETHOXAZOLE\TRIMETHOPRIM
     Indication: INFECTION PROPHYLAXIS
     Route: 048
     Dates: start: 20160910
  34. MIKELUNA [Concomitant]
     Indication: GLAUCOMA
     Route: 047
     Dates: start: 20210210

REACTIONS (2)
  - Pneumonitis [Recovered/Resolved]
  - Hypokalaemia [Not Recovered/Not Resolved]

NARRATIVE: CASE EVENT DATE: 20180524
